FAERS Safety Report 21604344 (Version 2)
Quarter: 2022Q4

REPORT INFORMATION
  Report Type: Report from Study
  Country: US (occurrence: US)
  Receive Date: 20221116
  Receipt Date: 20221209
  Transmission Date: 20230113
  Serious: No
  Sender: FDA-Public Use
  Company Number: US-ABBVIE-4200332

PATIENT
  Sex: Female

DRUGS (2)
  1. IMBRUVICA [Suspect]
     Active Substance: IBRUTINIB
     Indication: Chronic lymphocytic leukaemia
     Dosage: THE ONSET DATE FOR ADVERSE EVENT COVID-19 WAS JAN 2022 BUT DUE TO SYSTEM LIMITATION IT WAS NOT CA...
     Route: 048
  2. IMBRUVICA [Suspect]
     Active Substance: IBRUTINIB
     Indication: Chronic lymphocytic leukaemia
     Route: 048

REACTIONS (3)
  - Arthralgia [Unknown]
  - Productive cough [Not Recovered/Not Resolved]
  - COVID-19 [Unknown]
